FAERS Safety Report 6573894-1 (Version None)
Quarter: 2010Q1

REPORT INFORMATION
  Report Type: 
  Country: None (occurrence: None)
  Receive Date: 20100208
  Receipt Date: 20100128
  Transmission Date: 20100710
  Serious: No
  Sender: FDA-Public Use
  Company Number: US-B.I. PHARMACEUTICALS,INC./RIDGEFIELD-2010-BP-01153BP

PATIENT
  Sex: Male

DRUGS (1)
  1. ATROVENT [Suspect]
     Indication: ASTHMA
     Route: 013
     Dates: start: 20100101

REACTIONS (2)
  - DYSPHONIA [None]
  - PROSTATIC SPECIFIC ANTIGEN INCREASED [None]
